FAERS Safety Report 8297762-2 (Version None)
Quarter: 2012Q2

REPORT INFORMATION
  Report Type: 
  Country: None (occurrence: None)
  Receive Date: 20120419
  Receipt Date: 20120411
  Transmission Date: 20120825
  Serious: Yes (Hospitalization)
  Sender: FDA-Public Use
  Company Number: CA-SANOFI-AVENTIS-2012SA024283

PATIENT
  Age: 53 Year
  Sex: Male
  Weight: 86.4 kg

DRUGS (18)
  1. PREDNISONE TAB [Suspect]
     Indication: PROSTATE CANCER METASTATIC
     Route: 065
     Dates: start: 20120208
  2. ONDANSETRON [Concomitant]
     Indication: PROPHYLAXIS
     Route: 048
     Dates: start: 20090101
  3. SENOKOT /UNK/ [Concomitant]
     Indication: PROPHYLAXIS
     Route: 048
     Dates: start: 20120117
  4. CIPROFLOXACIN [Concomitant]
     Indication: PROPHYLAXIS
     Route: 048
     Dates: start: 20120313
  5. CABAZITAXEL [Suspect]
     Indication: PROSTATE CANCER METASTATIC
     Route: 042
     Dates: start: 20120208, end: 20120208
  6. METOCLOPRAMIDE [Concomitant]
     Indication: PROPHYLAXIS
     Route: 048
     Dates: start: 20120118
  7. PROCHLORPERAZINE [Concomitant]
     Indication: PROPHYLAXIS
     Route: 042
     Dates: start: 20111218
  8. OXAZEPAM [Concomitant]
     Indication: PROPHYLAXIS
     Route: 048
  9. LACTULOSE [Concomitant]
     Indication: PROPHYLAXIS
     Route: 048
     Dates: start: 20120123
  10. GABAPENTIN [Concomitant]
     Indication: PROPHYLAXIS
     Route: 048
     Dates: start: 20120126
  11. PANTOPRAZOLE [Concomitant]
     Indication: PROPHYLAXIS
     Route: 048
     Dates: start: 20120118
  12. METHOTRIMEPRAZINE [Concomitant]
     Indication: PROPHYLAXIS
     Route: 048
     Dates: start: 20120111
  13. AMLODIPINE [Concomitant]
     Indication: PROPHYLAXIS
     Route: 048
  14. SEPTRA [Concomitant]
     Indication: DRUG THERAPY
     Route: 048
     Dates: start: 20120302, end: 20120312
  15. CABAZITAXEL [Suspect]
     Route: 042
     Dates: start: 20120313, end: 20120313
  16. HYDROMORPHONE HCL [Concomitant]
     Indication: DRUG THERAPY
     Route: 040
     Dates: start: 20120124
  17. FLUOXETINE [Concomitant]
     Indication: PROPHYLAXIS
     Route: 048
  18. TRAZODONE HCL [Concomitant]
     Indication: PROPHYLAXIS
     Route: 048
     Dates: start: 20110101

REACTIONS (2)
  - PHLEBITIS INFECTIVE [None]
  - FALL [None]
